FAERS Safety Report 7374328-X (Version None)
Quarter: 2011Q1

REPORT INFORMATION
  Report Type: 
  Country: None (occurrence: None)
  Receive Date: 20110317
  Receipt Date: 20110307
  Transmission Date: 20110831
  Serious: Yes (Death, Hospitalization)
  Sender: FDA-Public Use
  Company Number: 2009AC000435

PATIENT
  Age: 60 Year
  Sex: Female
  Weight: 70.3075 kg

DRUGS (70)
  1. DIGOXIN [Suspect]
     Indication: CARDIAC DISORDER
     Dosage: 0.125 MG; QD; PO
     Route: 048
     Dates: start: 20070701
  2. SYNTHROID [Concomitant]
  3. ZETIA [Concomitant]
  4. TRICOR [Concomitant]
  5. PHENAZOPYRIDINE HCL TAB [Concomitant]
  6. CIPROFLOXACILLIN [Concomitant]
  7. LISINOPRIL [Concomitant]
  8. POTASSIUM CHLORIDE [Concomitant]
  9. CEPHALEXIN [Concomitant]
  10. HUMIBID [Concomitant]
  11. CARDIZEM [Concomitant]
  12. MORPHINE [Concomitant]
  13. ISOPROTERENOL HCL [Concomitant]
  14. IMIPENEM [Concomitant]
  15. FLUOXETINE [Concomitant]
  16. POTASSIUM CHLORIDE [Concomitant]
  17. MYCOSTATIN [Concomitant]
  18. PHENAZOPYRIDINE HCL TAB [Concomitant]
  19. ATIVAN [Concomitant]
  20. TEQUIN [Concomitant]
  21. DIGOXIN [Suspect]
     Dosage: 0.125 MG; QD; PO
     Route: 048
     Dates: start: 20070614, end: 20070801
  22. SYNTHROID [Concomitant]
  23. PLAVIX [Concomitant]
  24. ALDACTONE [Concomitant]
  25. ZITHROMAX [Concomitant]
  26. VERSED [Concomitant]
  27. FENTANYL [Concomitant]
  28. SPIRONOLACTONE [Concomitant]
  29. LEVOPHED [Concomitant]
  30. CLARINEX [Concomitant]
  31. VANCOMYCIN [Concomitant]
  32. CEFTIN [Concomitant]
  33. ZOFRAN [Concomitant]
  34. ALBUMIN (HUMAN) [Concomitant]
  35. PITRESSIN [Concomitant]
  36. CALCIUM GLUCONATE [Concomitant]
  37. LEVAQUIN [Concomitant]
  38. TOPROL-XL [Concomitant]
  39. LASIX [Concomitant]
  40. PROMETHAZINE [Concomitant]
  41. PROZAC [Concomitant]
  42. SELDANE [Concomitant]
  43. ATROPINE [Concomitant]
  44. CODEINE SUL TAB [Concomitant]
  45. FLUOXETINE [Concomitant]
  46. NAPROXEN [Concomitant]
  47. OXYCODONE HCL [Concomitant]
  48. COMBIVENT [Concomitant]
  49. DIGIBIND [Concomitant]
  50. OXYGEN [Concomitant]
  51. FLAGYL [Concomitant]
  52. SODIUM BICARBONATE [Concomitant]
  53. ASPIRIN [Concomitant]
  54. PROTONIX [Concomitant]
  55. COZAAR [Concomitant]
  56. IRON [Concomitant]
  57. PACERONE [Concomitant]
  58. CLEOCIN [Concomitant]
  59. CRESTOR [Concomitant]
  60. PREMARIN [Concomitant]
  61. DOPAMINE [Concomitant]
  62. PHENERGAN HCL [Concomitant]
  63. CLARINEX [Concomitant]
  64. PROTONIX [Concomitant]
  65. PLAVIX [Concomitant]
  66. HEPARIN [Concomitant]
  67. SODIUM CHLORIDE [Concomitant]
  68. TROVAN [Concomitant]
  69. PREDNISONE [Concomitant]
  70. VIBRAMYCIN [Concomitant]

REACTIONS (48)
  - METABOLIC ACIDOSIS [None]
  - MITRAL VALVE INCOMPETENCE [None]
  - TORSADE DE POINTES [None]
  - ATRIAL FLUTTER [None]
  - AORTIC THROMBOSIS [None]
  - HYPOMAGNESAEMIA [None]
  - PNEUMONIA [None]
  - PANCREATITIS [None]
  - RHINITIS ALLERGIC [None]
  - ACUTE MYOCARDIAL INFARCTION [None]
  - UNRESPONSIVE TO STIMULI [None]
  - HYPONATRAEMIA [None]
  - STREPTOCOCCAL INFECTION [None]
  - BRADYCARDIA [None]
  - CONDITION AGGRAVATED [None]
  - PLEURAL EFFUSION [None]
  - PHARYNGITIS [None]
  - DYSPHONIA [None]
  - GLOSSODYNIA [None]
  - BACK PAIN [None]
  - VENOUS THROMBOSIS [None]
  - GENERALISED OEDEMA [None]
  - ASCITES [None]
  - ATRIAL FIBRILLATION [None]
  - NODAL RHYTHM [None]
  - AORTIC VALVE INCOMPETENCE [None]
  - SEPTIC SHOCK [None]
  - HYPERBILIRUBINAEMIA [None]
  - MULTI-ORGAN FAILURE [None]
  - RENAL FAILURE ACUTE [None]
  - CELLULITIS [None]
  - ATRIOVENTRICULAR BLOCK FIRST DEGREE [None]
  - FAILURE TO THRIVE [None]
  - ATRIOVENTRICULAR DISSOCIATION [None]
  - RENAL CYST [None]
  - ILIAC ARTERY THROMBOSIS [None]
  - DISSEMINATED INTRAVASCULAR COAGULATION [None]
  - HYPERTENSION [None]
  - TOXICITY TO VARIOUS AGENTS [None]
  - CAROTID ARTERY STENOSIS [None]
  - BRONCHITIS [None]
  - LYMPHOMA [None]
  - DEHYDRATION [None]
  - ACUTE PRERENAL FAILURE [None]
  - RESPIRATORY FAILURE [None]
  - SPLENIC ABSCESS [None]
  - ANAEMIA [None]
  - AORTIC VALVE STENOSIS [None]
